FAERS Safety Report 8989666 (Version 2)
Quarter: 2013Q1

REPORT INFORMATION
  Report Type: Report from Study
  Country: DE (occurrence: DE)
  Receive Date: 20121228
  Receipt Date: 20130103
  Transmission Date: 20140127
  Serious: Yes (Hospitalization)
  Sender: FDA-Public Use
  Company Number: DE-AMGEN-DEUCT2012083292

PATIENT
  Age: 62 Year
  Sex: Female
  Weight: 84.3 kg

DRUGS (5)
  1. ETANERCEPT [Suspect]
     Indication: PSORIATIC ARTHROPATHY
     Dosage: 25 MG, 2 TIMES/WK
     Route: 058
     Dates: start: 20111205
  2. METEX                              /00113802/ [Concomitant]
     Indication: PSORIATIC ARTHROPATHY
     Dosage: 15 MG, WEEKLY
     Route: 058
     Dates: start: 201010
  3. METEX                              /00113802/ [Concomitant]
     Dosage: 15 MG, WEEKLY
     Route: 058
     Dates: start: 201204
  4. LEFLUNOMIDE [Concomitant]
     Indication: PSORIATIC ARTHROPATHY
     Dosage: 25 MG,  EVERY TWO DAYS
     Route: 048
     Dates: start: 201104, end: 201112
  5. METYPRED [Concomitant]
     Indication: PSORIATIC ARTHROPATHY
     Dosage: 8 MG, 1X/DAY
     Route: 048
     Dates: start: 201007

REACTIONS (1)
  - Abdominal pain upper [Recovered/Resolved]
